FAERS Safety Report 6878705-2 (Version None)
Quarter: 2010Q3

REPORT INFORMATION
  Report Type: 
  Country: None (occurrence: None)
  Receive Date: 20100728
  Receipt Date: 20100722
  Transmission Date: 20110219
  Serious: Yes (Other)
  Sender: FDA-Public Use
  Company Number: B0667344A

PATIENT
  Sex: Female

DRUGS (5)
  1. LAPATINIB [Suspect]
     Dates: start: 20090730
  2. CAPECITABINE [Suspect]
     Route: 048
     Dates: start: 20090828, end: 20091023
  3. METFORMIN HCL [Concomitant]
  4. GLIBENCLAMIDE [Concomitant]
  5. INSULIN [Concomitant]

REACTIONS (5)
  - BLOOD BILIRUBIN INCREASED [None]
  - HEPATIC ENZYME INCREASED [None]
  - HEPATOTOXICITY [None]
  - METASTASES TO CENTRAL NERVOUS SYSTEM [None]
  - METASTASES TO LIVER [None]
